FAERS Safety Report 8394770-8 (Version None)
Quarter: 2012Q1

REPORT INFORMATION
  Report Type: 
  Country: None (occurrence: None)
  Receive Date: 20120323
  Receipt Date: 20110518
  Transmission Date: 20120608
  Serious: Yes (Hospitalization)
  Sender: FDA-Public Use
  Company Number: 163-21880-11050443

PATIENT
  Age: 79 Year
  Sex: Male

DRUGS (9)
  1. OMEPRAZOLE [Concomitant]
  2. REVLIMID [Suspect]
     Indication: MULTIPLE MYELOMA
     Dosage: 25 MG, 1 IN 1 D, PO
     Route: 048
     Dates: start: 20110221
  3. DOCUSATE SODIUM [Concomitant]
  4. KLOR-CON [Concomitant]
  5. PATANOL [Concomitant]
  6. CITALOPRAM HYDROBROMIDE [Concomitant]
  7. SPIRIVA [Concomitant]
  8. DEXAMETHASONE [Concomitant]
  9. FUROSEMIDE [Concomitant]

REACTIONS (1)
  - CELLULITIS [None]
